FAERS Safety Report 21850404 (Version 2)
Quarter: 2023Q1

REPORT INFORMATION
  Report Type: Spontaneous
  Country: US (occurrence: US)
  Receive Date: 20230111
  Receipt Date: 20230123
  Transmission Date: 20230417
  Serious: Yes (Other)
  Sender: FDA-Public Use
  Company Number: US-ELI_LILLY_AND_COMPANY-US202212010289

PATIENT
  Sex: Female

DRUGS (2)
  1. HUMALOG KWIKPEN [Suspect]
     Active Substance: INSULIN LISPRO
     Indication: Type 2 diabetes mellitus
     Dosage: 30 U, TID
     Route: 058
     Dates: start: 2002
  2. HUMALOG KWIKPEN [Suspect]
     Active Substance: INSULIN LISPRO
     Dosage: 30 U, TID
     Route: 058
     Dates: start: 2002

REACTIONS (3)
  - Cerebrovascular accident [Recovering/Resolving]
  - Cataract [Unknown]
  - Blood glucose decreased [Unknown]
